FAERS Safety Report 5713819-1 (Version None)
Quarter: 2008Q2

REPORT INFORMATION
  Report Type: 
  Country: None (occurrence: None)
  Receive Date: 20080421
  Receipt Date: 20080414
  Transmission Date: 20081010
  Serious: Yes (Life-Threatening, Hospitalization)
  Sender: FDA-Public Use
  Company Number: TPA2008A00140

PATIENT
  Age: 78 Year
  Sex: Female
  Weight: 71.4415 kg

DRUGS (7)
  1. ACTOS [Suspect]
     Indication: TYPE 2 DIABETES MELLITUS
     Dosage: 30 MG, 1 IN 1 D, PER ORAL
     Route: 048
     Dates: start: 20061001
  2. COUMADIN [Concomitant]
  3. ZOCOR [Concomitant]
  4. TOPROL-XL [Concomitant]
  5. GLUCOTROL [Concomitant]
  6. LISINOPRIL HCT (HYDROCHLOROTHIAZIDE, LISINOPRIL) [Concomitant]
  7. PROTONIX [Concomitant]

REACTIONS (6)
  - ATRIAL FIBRILLATION [None]
  - DYSPNOEA [None]
  - PLEURAL EFFUSION [None]
  - PULMONARY OEDEMA [None]
  - RESPIRATORY FAILURE [None]
  - TACHYPNOEA [None]
